FAERS Safety Report 25519488 (Version 5)
Quarter: 2025Q3

REPORT INFORMATION
  Report Type: Report from Study
  Country: US (occurrence: US)
  Receive Date: 20250704
  Receipt Date: 20250919
  Transmission Date: 20251020
  Serious: Yes (Other)
  Sender: MALLINCKRODT
  Company Number: US-MALLINCKRODT-MNK202504072

PATIENT
  Age: 89 Year
  Sex: Female
  Weight: 111 kg

DRUGS (5)
  1. CORTICOTROPIN [Suspect]
     Active Substance: CORTICOTROPIN
     Indication: Rheumatoid arthritis
     Route: 058
     Dates: start: 20250512, end: 20250828
  2. CORTICOTROPIN [Suspect]
     Active Substance: CORTICOTROPIN
     Indication: Rheumatoid arthritis
  3. HUMIRA [Suspect]
     Active Substance: ADALIMUMAB
     Indication: Pain
     Dates: start: 20250715, end: 202507
  4. HUMIRA [Suspect]
     Active Substance: ADALIMUMAB
     Indication: Swelling
     Dates: start: 202507, end: 2025
  5. HUMIRA [Suspect]
     Active Substance: ADALIMUMAB
     Dates: start: 2025, end: 2025

REACTIONS (8)
  - Rheumatoid arthritis [Unknown]
  - Hip fracture [Unknown]
  - Inflammation [Unknown]
  - Pain [Unknown]
  - Fluid retention [Unknown]
  - Asthenia [Unknown]
  - Contraindicated product administered [Unknown]
  - Absence of immediate treatment response [Unknown]

NARRATIVE: CASE EVENT DATE: 20250101
